FAERS Safety Report 25202941 (Version 1)
Quarter: 2025Q2

REPORT INFORMATION
  Report Type: Spontaneous
  Country: US (occurrence: US)
  Receive Date: 20250416
  Receipt Date: 20250416
  Transmission Date: 20250716
  Serious: Yes (Hospitalization)
  Sender: BAYER
  Company Number: US-BAYER-2025A049842

PATIENT
  Age: 38 Year
  Sex: Female

DRUGS (1)
  1. MIRENA [Suspect]
     Active Substance: LEVONORGESTREL
     Indication: Ovarian cyst
     Dosage: 20?G/DAY
     Route: 015

REACTIONS (2)
  - Device expulsion [Not Recovered/Not Resolved]
  - Product use in unapproved indication [None]
